FAERS Safety Report 20714417 (Version 1)
Quarter: 2022Q2

REPORT INFORMATION
  Report Type: Spontaneous
  Country: US (occurrence: None)
  Receive Date: 20220415
  Receipt Date: 20220415
  Transmission Date: 20220720
  Serious: Yes (Death)
  Sender: FDA-Public Use
  Company Number: None

PATIENT
  Age: 95 Year
  Sex: Female

DRUGS (1)
  1. PROLIA [Suspect]
     Active Substance: DENOSUMAB
     Dosage: OTHER FREQUENCY : Q6MONTHS;?
     Route: 058
     Dates: start: 20201020

REACTIONS (1)
  - Death [None]

NARRATIVE: CASE EVENT DATE: 20211210
